FAERS Safety Report 6920218-3 (Version None)
Quarter: 2010Q3

REPORT INFORMATION
  Report Type: 
  Country: None (occurrence: None)
  Receive Date: 20100809
  Receipt Date: 20100301
  Transmission Date: 20110219
  Serious: Yes (Death, Hospitalization)
  Sender: FDA-Public Use
  Company Number: 2010-US-0014

PATIENT
  Age: 68 Year
  Sex: Female

DRUGS (2)
  1. SANCUSO [Suspect]
     Indication: PROPHYLAXIS OF NAUSEA AND VOMITING
     Dosage: TRANSDERMAL
     Route: 062
     Dates: start: 20100201, end: 20100208
  2. CHEMOTHERAPY [Concomitant]

REACTIONS (1)
  - GENERAL PHYSICAL HEALTH DETERIORATION [None]
